FAERS Safety Report 6840961-4 (Version None)
Quarter: 2010Q3

REPORT INFORMATION
  Report Type: 
  Country: None (occurrence: None)
  Receive Date: 20100714
  Receipt Date: 20070619
  Transmission Date: 20110219
  Serious: No
  Sender: FDA-Public Use
  Company Number: US-PFIZER INC-2007052050

PATIENT
  Sex: Female
  Weight: 86.363 kg

DRUGS (8)
  1. CHANTIX [Suspect]
     Indication: SMOKING CESSATION THERAPY
     Route: 048
     Dates: start: 20070601
  2. INSULIN ASPART [Concomitant]
     Indication: DIABETES MELLITUS
  3. LASIX [Concomitant]
  4. POTASSIUM CHLORIDE [Concomitant]
  5. LISINOPRIL [Concomitant]
  6. MULTI-VITAMINS [Concomitant]
  7. MULTI-B [Concomitant]
  8. LINSEED OIL [Concomitant]

REACTIONS (2)
  - ABNORMAL DREAMS [None]
  - FATIGUE [None]
